FAERS Safety Report 11498072 (Version 1)
Quarter: 2015Q3

REPORT INFORMATION
  Report Type: Spontaneous
  Country: GB (occurrence: GB)
  Receive Date: 20150911
  Receipt Date: 20150911
  Transmission Date: 20151125
  Serious: Yes (Other)
  Sender: FDA-Public Use
  Company Number: GB-BAUSCH-BL-2015-021210

PATIENT
  Age: 76 Year
  Sex: Male

DRUGS (1)
  1. MOVIPREP [Suspect]
     Active Substance: ASCORBIC ACID\POLYETHYLENE GLYCOL 3350\POTASSIUM CHLORIDE\SODIUM ASCORBATE\SODIUM CHLORIDE\SODIUM SULFATE
     Indication: SURGERY
     Dosage: (2 SACHET,1 TOTAL)
     Dates: start: 20150616, end: 20150616

REACTIONS (2)
  - Discomfort [Unknown]
  - Contraindicated drug administered [Unknown]

NARRATIVE: CASE EVENT DATE: 20150616
